FAERS Safety Report 21619724 (Version 4)
Quarter: 2022Q4

REPORT INFORMATION
  Report Type: Spontaneous
  Country: JP (occurrence: JP)
  Receive Date: 20221121
  Receipt Date: 20221229
  Transmission Date: 20230113
  Serious: Yes (Hospitalization)
  Sender: FDA-Public Use
  Company Number: JP-MTPC-MTPC2022-0031245

PATIENT
  Age: 77 Year
  Sex: Male

DRUGS (8)
  1. EDARAVONE [Suspect]
     Active Substance: EDARAVONE
     Indication: Amyotrophic lateral sclerosis
     Dosage: UNK UNK, QD
     Route: 041
     Dates: start: 20221004, end: 20221017
  2. EDARAVONE [Suspect]
     Active Substance: EDARAVONE
     Dosage: 60 MILLIGRAM, QD
     Route: 041
     Dates: start: 20221101, end: 20221107
  3. LOXOPROFEN [Suspect]
     Active Substance: LOXOPROFEN
     Route: 065
  4. RILUZOLE [Concomitant]
     Active Substance: RILUZOLE
     Indication: Amyotrophic lateral sclerosis
     Dosage: 50 MILLIGRAM, BID
     Route: 048
     Dates: start: 20221004, end: 20221109
  5. AMLODIPINE [Concomitant]
     Active Substance: AMLODIPINE BESYLATE
     Indication: Hypertension
     Dosage: 2.5 MILLIGRAM, QD
     Route: 048
     Dates: end: 20221109
  6. CRESTOR [Concomitant]
     Active Substance: ROSUVASTATIN CALCIUM
     Indication: Dyslipidaemia
     Dosage: 2.5 MILLIGRAM, QD
     Route: 048
     Dates: end: 20221109
  7. FEBUXOSTAT [Concomitant]
     Active Substance: FEBUXOSTAT
     Indication: Gout
     Dosage: 10 MILLIGRAM, QD
     Route: 048
     Dates: end: 20221109
  8. METHYLCOBALAMIN [Concomitant]
     Active Substance: METHYLCOBALAMIN
     Dosage: 500 MICROGRAM, TID
     Route: 048
     Dates: end: 20221109

REACTIONS (6)
  - Cardiac failure congestive [Recovering/Resolving]
  - Atrial fibrillation [Not Recovered/Not Resolved]
  - Bacterial infection [Recovered/Resolved]
  - Pneumonia [Recovered/Resolved]
  - Renal failure [Recovered/Resolved]
  - Gastritis [Recovering/Resolving]

NARRATIVE: CASE EVENT DATE: 20221102
